FAERS Safety Report 17966101 (Version 3)
Quarter: 2021Q3

REPORT INFORMATION
  Report Type: Spontaneous
  Country: US (occurrence: US)
  Receive Date: 20200630
  Receipt Date: 20210921
  Transmission Date: 20211014
  Serious: Yes (Hospitalization, Disabling, Other)
  Sender: FDA-Public Use
  Company Number: US-NAPPMUNDI-USA-2020-0153536

PATIENT
  Sex: Female

DRUGS (2)
  1. HYDROCODONE BITARTRATE (SIMILAR TO NDA 206627) [Suspect]
     Active Substance: HYDROCODONE BITARTRATE
     Indication: PAIN
     Dosage: AT FIRST, SHE WAS PRESCRIBED 20 PILLS AND MONTH BY MONTH THE AMOUNT OF PILLS WAS INCREASED
     Route: 048
     Dates: start: 1998, end: 2014
  2. OXYCODONE HYDROCHLORIDE (SIMILAR TO NDA 22?272) [Suspect]
     Active Substance: OXYCODONE HYDROCHLORIDE
     Indication: PAIN
     Dosage: UNKNOWN
     Route: 048
     Dates: start: 1998, end: 2014

REACTIONS (7)
  - Hepatic failure [Unknown]
  - Mental disorder [Unknown]
  - Drug dependence [Recovered/Resolved]
  - Overdose [Unknown]
  - Pain [Unknown]
  - Depression [Unknown]
  - General physical health deterioration [Unknown]

NARRATIVE: CASE EVENT DATE: 1998
